FAERS Safety Report 18581319 (Version 1)
Quarter: 2020Q4

REPORT INFORMATION
  Report Type: Spontaneous
  Country: US (occurrence: US)
  Receive Date: 20201204
  Receipt Date: 20201204
  Transmission Date: 20210114
  Serious: No
  Sender: FDA-Public Use
  Company Number: US-HARMONY BIOSCIENCES-2020HMY01529

PATIENT
  Sex: Male

DRUGS (5)
  1. WAKIX [Suspect]
     Active Substance: PITOLISANT HYDROCHLORIDE
     Indication: SOMNOLENCE
     Dosage: 17.8 MG, 1X/DAY
  2. SERTRALINE [Concomitant]
     Active Substance: SERTRALINE HYDROCHLORIDE
  3. METHAMPHETAMINE [Suspect]
     Active Substance: METHAMPHETAMINE
     Dosage: HIGH DOSE
  4. WAKIX [Suspect]
     Active Substance: PITOLISANT HYDROCHLORIDE
     Indication: NARCOLEPSY
     Dosage: ^INITIAL DOSE^
  5. WAKIX [Suspect]
     Active Substance: PITOLISANT HYDROCHLORIDE
     Indication: CATAPLEXY
     Dosage: ^LOWER STANDARD DOSE^

REACTIONS (2)
  - Intentional dose omission [Unknown]
  - Insomnia [Not Recovered/Not Resolved]
